FAERS Safety Report 5920399-4 (Version None)
Quarter: 2008Q4

REPORT INFORMATION
  Report Type: 
  Country: None (occurrence: None)
  Receive Date: 20081014
  Receipt Date: 20081003
  Transmission Date: 20090506
  Serious: Yes (Hospitalization)
  Sender: FDA-Public Use
  Company Number: 2008SP018232

PATIENT
  Age: 29 Year
  Sex: Female
  Weight: 75 kg

DRUGS (5)
  1. TEMOZOLOMIDE [Suspect]
     Indication: GLIOBLASTOMA
     Dosage: ; PO
     Route: 048
     Dates: start: 20070709, end: 20070817
  2. TEMOZOLOMIDE [Suspect]
     Indication: GLIOBLASTOMA
     Dosage: ; PO
     Route: 048
     Dates: start: 20070709, end: 20080804
  3. TEGRETOL [Concomitant]
  4. GABAPENTIN [Concomitant]
  5. OMEPRAZOLE [Concomitant]

REACTIONS (11)
  - CENTRAL NERVOUS SYSTEM INFECTION [None]
  - CULTURE POSITIVE [None]
  - DEVICE RELATED INFECTION [None]
  - DISEASE PROGRESSION [None]
  - ENTEROBACTER INFECTION [None]
  - ESCHERICHIA INFECTION [None]
  - INTRAVENTRICULAR HAEMORRHAGE [None]
  - LEUKOPENIA [None]
  - MEDICAL DEVICE COMPLICATION [None]
  - NEUTROPENIA [None]
  - WOUND INFECTION [None]
